FAERS Safety Report 7305578-6 (Version None)
Quarter: 2011Q1

REPORT INFORMATION
  Report Type: 
  Country: None (occurrence: None)
  Receive Date: 20110210
  Receipt Date: 20110204
  Transmission Date: 20110831
  Serious: Yes (Death, Hospitalization)
  Sender: FDA-Public Use
  Company Number: 2011SP005270

PATIENT
  Age: 75 Year
  Sex: Female

DRUGS (9)
  1. AERIUS (DESLORATADINE / 01398501 / ) [Suspect]
     Indication: PRODUCT USED FOR UNKNOWN INDICATION
  2. KESTIN [Concomitant]
  3. SOLUPRED [Concomitant]
  4. METVIXIA [Suspect]
     Indication: BASAL CELL CARCINOMA
     Dosage: ; CUT
     Route: 003
     Dates: start: 20100301
  5. CHONDROSULF (CHONDROITIN SULFATE SODIUM) [Suspect]
     Indication: PRODUCT USED FOR UNKNOWN INDICATION
  6. ANTARENE [Concomitant]
  7. ACETAMINOPHEN [Concomitant]
  8. KETOPROFEN (OTHER MFR) (KETOPROFEN) [Suspect]
     Indication: PRODUCT USED FOR UNKNOWN INDICATION
  9. OROKEN [Concomitant]

REACTIONS (38)
  - ASTHMA [None]
  - DRUG HYPERSENSITIVITY [None]
  - OEDEMA PERIPHERAL [None]
  - COUGH [None]
  - LIP PAIN [None]
  - DRUG RASH WITH EOSINOPHILIA AND SYSTEMIC SYMPTOMS [None]
  - RENAL FAILURE [None]
  - HYPONATRAEMIA [None]
  - DERMATITIS EXFOLIATIVE [None]
  - DYSPNOEA [None]
  - SEPSIS [None]
  - CYANOSIS [None]
  - DYSPHAGIA [None]
  - HYPERLACTACIDAEMIA [None]
  - SHOCK [None]
  - MULTI-ORGAN FAILURE [None]
  - PLEURAL EFFUSION [None]
  - LARYNGEAL OEDEMA [None]
  - PYREXIA [None]
  - EOSINOPHILIA [None]
  - CULTURE URINE POSITIVE [None]
  - LIVEDO RETICULARIS [None]
  - FACE OEDEMA [None]
  - DYSPHONIA [None]
  - ACIDOSIS [None]
  - DEPRESSED LEVEL OF CONSCIOUSNESS [None]
  - OEDEMA [None]
  - DIARRHOEA [None]
  - ANAEMIA [None]
  - WHITE BLOOD CELL COUNT INCREASED [None]
  - RASH GENERALISED [None]
  - INFLAMMATION [None]
  - METABOLIC ACIDOSIS [None]
  - ESCHERICHIA TEST POSITIVE [None]
  - MOUTH ULCERATION [None]
  - LEUKOCYTOSIS [None]
  - OESOPHAGITIS ULCERATIVE [None]
  - THROMBOCYTOPENIA [None]
